FAERS Safety Report 7269611-2 (Version None)
Quarter: 2011Q1

REPORT INFORMATION
  Report Type: 
  Country: None (occurrence: None)
  Receive Date: 20110202
  Receipt Date: 20110125
  Transmission Date: 20110831
  Serious: Yes (Other)
  Sender: FDA-Public Use
  Company Number: US-JNJFOC-20100907355

PATIENT
  Sex: Female

DRUGS (2)
  1. LEVAQUIN [Suspect]
     Indication: LEIOMYOSARCOMA
     Route: 042
  2. LEVAQUIN [Suspect]
     Indication: ULCER HAEMORRHAGE
     Route: 048

REACTIONS (8)
  - TENDON DISORDER [None]
  - SKIN ULCER [None]
  - TENDONITIS [None]
  - ANXIETY [None]
  - INSOMNIA [None]
  - NIGHTMARE [None]
  - ROTATOR CUFF SYNDROME [None]
  - JOINT INJURY [None]
